FAERS Safety Report 23751785 (Version 1)
Quarter: 2024Q2

REPORT INFORMATION
  Report Type: Spontaneous
  Country: US (occurrence: US)
  Receive Date: 20240417
  Receipt Date: 20240417
  Transmission Date: 20240715
  Serious: No
  Sender: FDA-Public Use
  Company Number: US-TORRENT-00013524

PATIENT
  Age: 82 Year
  Sex: Female
  Weight: 77 kg

DRUGS (1)
  1. ZOLPIDEM [Suspect]
     Active Substance: ZOLPIDEM TARTRATE
     Indication: Insomnia
     Dosage: TAKE 1 TABLET AT BEDTIME OR AS NEEDED
     Route: 048
     Dates: start: 2019

REACTIONS (1)
  - Alopecia [Unknown]
